FAERS Safety Report 4696294-8 (Version None)
Quarter: 2005Q2

REPORT INFORMATION
  Report Type: 
  Country: None (occurrence: None)
  Receive Date: 20050621
  Receipt Date: 20050613
  Transmission Date: 20051028
  Serious: Yes (Other)
  Sender: FDA-Public Use
  Company Number: PHBS2005IE08374

PATIENT
  Age: 81 Year
  Sex: Male

DRUGS (12)
  1. CHOP [Concomitant]
     Route: 065
     Dates: start: 20040707, end: 20041013
  2. RITUXIMAB [Concomitant]
     Route: 065
     Dates: start: 20040707, end: 20041013
  3. STEROIDS NOS [Concomitant]
     Dosage: HIGH DOSES
     Route: 065
     Dates: start: 20040707, end: 20041013
  4. WARFARIN [Concomitant]
     Route: 065
  5. PERINDOPRIL [Concomitant]
     Route: 065
  6. BISOPROLOL FUMARATE [Concomitant]
     Route: 065
  7. FRUSEMIDE [Concomitant]
     Route: 065
  8. ATORVASTATIN CALCIUM [Concomitant]
     Route: 065
  9. IDEOS [Concomitant]
     Route: 065
  10. NU-SEALS ASPIRIN [Concomitant]
     Route: 065
  11. DANABOL [Concomitant]
     Route: 065
  12. ZOMETA [Suspect]
     Route: 042
     Dates: start: 20040202

REACTIONS (9)
  - BONE DISORDER [None]
  - BONE PAIN [None]
  - IMPAIRED HEALING [None]
  - INCISIONAL DRAINAGE [None]
  - PRIMARY SEQUESTRUM [None]
  - SEQUESTRECTOMY [None]
  - SURGERY [None]
  - SWELLING [None]
  - TOOTH EXTRACTION [None]
